FAERS Safety Report 26101675 (Version 1)
Quarter: 2025Q4

REPORT INFORMATION
  Report Type: Spontaneous
  Country: CN (occurrence: CN)
  Receive Date: 20251128
  Receipt Date: 20251128
  Transmission Date: 20260119
  Serious: Yes (Life-Threatening, Other)
  Sender: GILEAD
  Company Number: CN-GILEAD-2025-0738758

PATIENT
  Age: 61 Year
  Sex: Female
  Weight: 61 kg

DRUGS (3)
  1. TRODELVY [Suspect]
     Active Substance: SACITUZUMAB GOVITECAN-HZIY
     Indication: Breast cancer
     Dosage: 600 MG, ON DAY 1 AND DAY 8, ONCE PER 3 WEEKS, Q3WK
     Route: 041
     Dates: start: 20251102
  2. TRODELVY [Suspect]
     Active Substance: SACITUZUMAB GOVITECAN-HZIY
     Dosage: 600 MG, ON DAY 1 AND DAY 8, ONCE PER 3 WEEKS, Q3WK
     Route: 041
     Dates: start: 20251109
  3. SODIUM CHLORIDE [Concomitant]
     Active Substance: SODIUM CHLORIDE
     Indication: Breast cancer
     Dosage: 300 ML, QD
     Route: 041
     Dates: start: 20251102, end: 20251109

REACTIONS (1)
  - Myelosuppression [Recovered/Resolved]

NARRATIVE: CASE EVENT DATE: 20251113
